FAERS Safety Report 21307043 (Version 9)
Quarter: 2023Q1

REPORT INFORMATION
  Report Type: Report from Study
  Country: US (occurrence: US)
  Receive Date: 20220908
  Receipt Date: 20230127
  Transmission Date: 20230417
  Serious: No
  Sender: FDA-Public Use
  Company Number: US-NOVARTISTESTPH-NVSC2022US202481

PATIENT
  Sex: Female

DRUGS (1)
  1. COSENTYX [Suspect]
     Active Substance: SECUKINUMAB
     Indication: Product used for unknown indication
     Dosage: UNK
     Route: 065

REACTIONS (6)
  - Dyslexia [Unknown]
  - Weight decreased [Not Recovered/Not Resolved]
  - Arthralgia [Unknown]
  - Liver disorder [Unknown]
  - Injection site discolouration [Unknown]
  - Needle issue [Unknown]
